FAERS Safety Report 18298673 (Version 2)
Quarter: 2020Q3

REPORT INFORMATION
  Report Type: Spontaneous
  Country: US (occurrence: DE)
  Receive Date: 20200922
  Receipt Date: 20200923
  Transmission Date: 20201103
  Serious: Yes (Hospitalization)
  Sender: FDA-Public Use
  Company Number: US-BAYER-2020-193198

PATIENT

DRUGS (7)
  1. LEVOFLOXACIN. [Suspect]
     Active Substance: LEVOFLOXACIN
     Indication: BRONCHITIS
     Dosage: 500 MG, QD
     Route: 048
     Dates: start: 20181101, end: 20181101
  2. OFLOX [Suspect]
     Active Substance: OFLOXACIN
     Indication: CYSTITIS NONINFECTIVE
     Dosage: UNK
     Dates: start: 20181001
  3. COTRIM [Suspect]
     Active Substance: SULFAMETHOXAZOLE\TRIMETHOPRIM
     Indication: CYSTITIS NONINFECTIVE
     Dosage: UNK
  4. CIPROFLOXACIN. [Suspect]
     Active Substance: CIPROFLOXACIN
     Indication: BRONCHITIS
     Dosage: 1000 MG, QD
     Route: 048
     Dates: start: 20190201, end: 20190201
  5. CIPROFLOXACIN. [Suspect]
     Active Substance: CIPROFLOXACIN
     Indication: BRONCHITIS
     Dosage: 1000 MG, QD
     Route: 048
     Dates: start: 20131101, end: 20131101
  6. CEFUROXIME. [Suspect]
     Active Substance: CEFUROXIME
     Indication: CYSTITIS NONINFECTIVE
     Dosage: UNK
     Route: 065
     Dates: start: 20190401
  7. OFLOX [Suspect]
     Active Substance: OFLOXACIN
     Indication: CYSTITIS NONINFECTIVE
     Dosage: UNK
     Route: 065
     Dates: start: 20181201

REACTIONS (12)
  - General physical health deterioration [Not Recovered/Not Resolved]
  - Pain in extremity [Not Recovered/Not Resolved]
  - Arthralgia [Not Recovered/Not Resolved]
  - Back pain [Not Recovered/Not Resolved]
  - Muscular weakness [Not Recovered/Not Resolved]
  - Formication [Not Recovered/Not Resolved]
  - Illusion [Not Recovered/Not Resolved]
  - Musculoskeletal pain [Not Recovered/Not Resolved]
  - Tendon disorder [Not Recovered/Not Resolved]
  - Tendon rupture [Not Recovered/Not Resolved]
  - Anxiety [Not Recovered/Not Resolved]
  - Presyncope [Not Recovered/Not Resolved]

NARRATIVE: CASE EVENT DATE: 20190101
